FAERS Safety Report 5069746-9 (Version None)
Quarter: 2006Q3

REPORT INFORMATION
  Report Type: 
  Country: None (occurrence: None)
  Receive Date: 20060731
  Receipt Date: 20060721
  Transmission Date: 20061208
  Serious: Yes (Other)
  Sender: FDA-Public Use
  Company Number: USA-2006-0024594

PATIENT
  Age: 33 Year
  Sex: Male

DRUGS (6)
  1. CEFDITOREN PIVOXIL (SIMILAR TO NDA 21-222) (CEFDITOREN PIVOXIL) [Suspect]
     Indication: INFECTION PROPHYLAXIS
     Dosage: 100 MG, DAILY, ORAL
     Route: 048
     Dates: start: 20060524, end: 20060524
  2. HY-STAMIN (DIPHENYLPYRALINE HYDROCHLORIDE) [Concomitant]
  3. HISHIPHAGEN-C [Concomitant]
  4. B-IRON [Concomitant]
  5. PRANDFEN (PRANOPROFEN) [Concomitant]
  6. GRIMAC (LEVOGLUTAMIDE, SODIUM GUALENATE) [Concomitant]

REACTIONS (1)
  - ANAPHYLACTIC SHOCK [None]
